FAERS Safety Report 21186191 (Version 2)
Quarter: 2022Q3

REPORT INFORMATION
  Report Type: Report from Study
  Country: GB (occurrence: GB)
  Receive Date: 20220808
  Receipt Date: 20220920
  Transmission Date: 20221026
  Serious: Yes (Hospitalization, Other)
  Sender: FDA-Public Use
  Company Number: GB-NOVARTISPH-NVSC2022GB147235

PATIENT
  Age: 28 Year
  Sex: Male

DRUGS (5)
  1. KESIMPTA [Suspect]
     Active Substance: OFATUMUMAB
     Indication: Multiple sclerosis
     Dosage: 20 MG, QMO
     Route: 058
     Dates: start: 202205
  2. KESIMPTA [Suspect]
     Active Substance: OFATUMUMAB
     Dosage: 20 MG, QW
     Route: 058
     Dates: start: 20220617
  3. KESIMPTA [Suspect]
     Active Substance: OFATUMUMAB
     Dosage: 20 MG, QMO
     Route: 058
     Dates: start: 202206
  4. LITHIUM [Suspect]
     Active Substance: LITHIUM
     Indication: Mental disorder
     Dosage: 1 G
     Route: 065
  5. LITHIUM [Suspect]
     Active Substance: LITHIUM
     Dosage: 400 MG
     Route: 065

REACTIONS (9)
  - Gait inability [Recovered/Resolved]
  - Arthralgia [Recovered/Resolved]
  - Multiple sclerosis relapse [Recovering/Resolving]
  - Dysarthria [Unknown]
  - Pain in extremity [Unknown]
  - Balance disorder [Unknown]
  - Headache [Unknown]
  - Pyrexia [Unknown]
  - Chills [Unknown]

NARRATIVE: CASE EVENT DATE: 20220617
